FAERS Safety Report 21214283 (Version 1)
Quarter: 2022Q3

REPORT INFORMATION
  Report Type: Spontaneous
  Country: US (occurrence: US)
  Receive Date: 20220816
  Receipt Date: 20220816
  Transmission Date: 20221027
  Serious: No
  Sender: FDA-Public Use
  Company Number: US-SA-SAC20220810000746

PATIENT
  Age: 23 Year
  Sex: Female
  Weight: 55.782 kg

DRUGS (10)
  1. FABRAZYME [Suspect]
     Active Substance: AGALSIDASE BETA
     Indication: Fabry^s disease
     Dosage: 55 MG, QOW
     Route: 042
     Dates: start: 20170104
  2. SODIUM CHLORIDE [Concomitant]
     Active Substance: SODIUM CHLORIDE
  3. EPINEPHRINE [Concomitant]
     Active Substance: EPINEPHRINE
  4. LIDOCAINE [Concomitant]
     Active Substance: LIDOCAINE
     Indication: Pain
  5. PRILOCAINE [Concomitant]
     Active Substance: PRILOCAINE
     Indication: Pain
  6. ZYRTEC [Concomitant]
     Active Substance: CETIRIZINE HYDROCHLORIDE
  7. STERILE WATER [Concomitant]
     Active Substance: WATER
  8. ALBUTEROL SULFATE [Concomitant]
     Active Substance: ALBUTEROL SULFATE
  9. SODIUM CHLORIDE [Concomitant]
     Active Substance: SODIUM CHLORIDE
  10. MINERALS\VITAMINS [Concomitant]
     Active Substance: MINERALS\VITAMINS

REACTIONS (2)
  - Arthralgia [Unknown]
  - Pain in extremity [Recovered/Resolved]

NARRATIVE: CASE EVENT DATE: 20220805
